FAERS Safety Report 4387766-4 (Version None)
Quarter: 2004Q2

REPORT INFORMATION
  Report Type: 
  Country: None (occurrence: None)
  Receive Date: 20040625
  Receipt Date: 20040607
  Transmission Date: 20050107
  Serious: Yes (Other)
  Sender: FDA-Public Use
  Company Number: 2004AP01439

PATIENT
  Sex: Male

DRUGS (14)
  1. OMEPRAL [Suspect]
     Indication: ABDOMINAL PAIN
     Dates: start: 20040115, end: 20040301
  2. CLARITHROMYCIN [Suspect]
     Dates: start: 20020101
  3. LASIX [Concomitant]
  4. LOXONIN [Concomitant]
  5. MUCOSOLVAN [Concomitant]
  6. MUCODYNE [Concomitant]
  7. ROCALTROL [Concomitant]
  8. SEREVENT [Concomitant]
  9. QVAR 40 [Concomitant]
  10. FLIVAS [Concomitant]
  11. ALBUTEROL [Concomitant]
  12. MENDON [Concomitant]
  13. ATROVENT [Concomitant]
  14. RADIATION THERAPY [Concomitant]

REACTIONS (4)
  - ASTHMA [None]
  - BACK PAIN [None]
  - EOSINOPHIL COUNT INCREASED [None]
  - METASTASES TO SPINE [None]
